FAERS Safety Report 4677556-7 (Version None)
Quarter: 2005Q2

REPORT INFORMATION
  Report Type: 
  Country: None (occurrence: None)
  Receive Date: 20050526
  Receipt Date: 20050526
  Transmission Date: 20051028
  Serious: Yes (Death)
  Sender: FDA-Public Use
  Company Number: None

PATIENT
  Age: 47 Year
  Sex: Female
  Weight: 117 kg

DRUGS (1)
  1. DILAUDID [Suspect]
     Indication: PAIN
     Dosage: 1 MG    ONCE   INTRAVENOU
     Route: 042
     Dates: start: 20050209, end: 20050209

REACTIONS (1)
  - RESUSCITATION [None]
